FAERS Safety Report 4343047-6 (Version None)
Quarter: 2004Q2

REPORT INFORMATION
  Report Type: 
  Country: None (occurrence: None)
  Receive Date: 20040421
  Receipt Date: 20040416
  Transmission Date: 20050107
  Serious: Yes (Hospitalization)
  Sender: FDA-Public Use
  Company Number: DE-ROCHE-364678

PATIENT
  Age: 21 Year
  Sex: Male
  Weight: 72 kg

DRUGS (4)
  1. PEG-INTERFERON ALFA 2A (RO 25-8310) [Suspect]
     Route: 058
     Dates: start: 20031203
  2. RIBAVIRIN [Concomitant]
     Route: 048
     Dates: start: 20031203
  3. ACETAMINOPHEN [Concomitant]
     Indication: ILL-DEFINED DISORDER
     Dosage: REGIMEN REPORTED AS UP TO 1.5GRAM PER DAY.
     Route: 048
     Dates: start: 20031203
  4. ATOSIL [Concomitant]
     Route: 048
     Dates: start: 20040217, end: 20040414

REACTIONS (3)
  - INJURY [None]
  - MENTAL DISORDER [None]
  - SCHIZOPHRENIA [None]
